FAERS Safety Report 5265364-8 (Version None)
Quarter: 2007Q1

REPORT INFORMATION
  Report Type: 
  Country: None (occurrence: None)
  Receive Date: 20070314
  Receipt Date: 20070221
  Transmission Date: 20070707
  Serious: Yes (Hospitalization, Other)
  Sender: FDA-Public Use
  Company Number: US-PFIZER INC-2007014340

PATIENT
  Sex: Female
  Weight: 93.4 kg

DRUGS (2)
  1. CELEBREX [Suspect]
     Indication: PAIN IN EXTREMITY
  2. CELEBREX [Suspect]
     Indication: OEDEMA PERIPHERAL

REACTIONS (2)
  - CARDIAC DISORDER [None]
  - DEPRESSION [None]
